FAERS Safety Report 9855716 (Version 3)
Quarter: 2014Q2

REPORT INFORMATION
  Report Type: Report from Study
  Country: DE (occurrence: DE)
  Receive Date: 20140130
  Receipt Date: 20140409
  Transmission Date: 20141212
  Serious: Yes (Hospitalization, Other)
  Sender: FDA-Public Use
  Company Number: PHHY2014DE009550

PATIENT
  Sex: Female
  Weight: 82 kg

DRUGS (8)
  1. AFINITOR [Suspect]
     Indication: BREAST CANCER METASTATIC
     Dosage: 10 MG, QD
     Route: 048
     Dates: start: 20131106, end: 20131227
  2. AFINITOR [Suspect]
     Dosage: 10 MG, QD
     Route: 048
     Dates: start: 20140106, end: 20140117
  3. EXEMESTANE [Concomitant]
     Indication: BREAST CANCER METASTATIC
     Dosage: 25 MG, QD
     Route: 048
     Dates: start: 20131106, end: 20140211
  4. EUTHYROX [Concomitant]
     Dosage: 150 UG, QD
     Route: 048
     Dates: start: 2000
  5. METOHEXAL [Concomitant]
     Dosage: 95 MG, BID
     Route: 048
     Dates: start: 2000
  6. METFORMIN [Concomitant]
     Dosage: 1000 MG, BID
     Route: 048
     Dates: start: 2013
  7. VITAMIN D3 [Concomitant]
     Dates: start: 2000
  8. CALCIUM [Concomitant]
     Dates: start: 2000

REACTIONS (2)
  - Constipation [Recovered/Resolved]
  - C-reactive protein increased [Unknown]
